FAERS Safety Report 5394882-7 (Version None)
Quarter: 2007Q3

REPORT INFORMATION
  Report Type: 
  Country: None (occurrence: None)
  Receive Date: 20070720
  Receipt Date: 20070709
  Transmission Date: 20080115
  Serious: Yes (Death)
  Sender: FDA-Public Use
  Company Number: 200707IM000255

PATIENT
  Age: 36 Year
  Sex: Female

DRUGS (2)
  1. ACTIMMUNE [Suspect]
     Indication: TUBERCULOSIS
     Dates: start: 20030723
  2. LINEZOLID [Suspect]
     Indication: TUBERCULOSIS
     Dosage: 600 MG
     Dates: start: 20030723

REACTIONS (1)
  - RESPIRATORY FAILURE [None]
